FAERS Safety Report 13966617 (Version 1)
Quarter: 2017Q3

REPORT INFORMATION
  Report Type: Spontaneous
  Country: ES (occurrence: ES)
  Receive Date: 20170914
  Receipt Date: 20170914
  Transmission Date: 20171128
  Serious: Yes (Other)
  Sender: FDA-Public Use
  Company Number: ES-CIPLA LTD.-2017ES16476

PATIENT

DRUGS (3)
  1. IRINOTECAN [Suspect]
     Active Substance: IRINOTECAN
     Indication: GLIOMA
     Dosage: UNK, WEEKLY
  2. CISPLATIN. [Suspect]
     Active Substance: CISPLATIN
     Indication: GLIOMA
     Dosage: 30 MG/M2, WEEKLY
  3. MANNITOL. [Concomitant]
     Active Substance: MANNITOL
     Dosage: 0.25 G/K, ALONG WITH CISPLATIN
     Route: 065

REACTIONS (2)
  - Tumour haemorrhage [Unknown]
  - Nervous system disorder [Unknown]
